FAERS Safety Report 21559704 (Version 1)
Quarter: 2022Q4

REPORT INFORMATION
  Report Type: Spontaneous
  Country: DE (occurrence: DE)
  Receive Date: 20221107
  Receipt Date: 20221107
  Transmission Date: 20230113
  Serious: Yes (Hospitalization)
  Sender: FDA-Public Use
  Company Number: DE-ADRED-07528-01

PATIENT
  Age: 83 Year
  Sex: Male
  Weight: 78 kg

DRUGS (3)
  1. BISOPROLOL [Suspect]
     Active Substance: BISOPROLOL
     Indication: Product used for unknown indication
     Dosage: 5 MILLIGRAM, BID, 0.25-0-0.25-0
     Route: 065
  2. AMLODIPINE BESYLATE [Concomitant]
     Active Substance: AMLODIPINE BESYLATE
     Dosage: 5 MILLIGRAM, BID, 1-0-1-0
     Route: 065
  3. RAMIPRIL [Concomitant]
     Active Substance: RAMIPRIL
     Dosage: 5 MILLIGRAM, BID, 0.5-0-0.5-0
     Route: 065

REACTIONS (6)
  - Arrhythmia [Unknown]
  - Bradycardia [Unknown]
  - Dizziness [Unknown]
  - Sleep disorder [Unknown]
  - Asthenia [Unknown]
  - Dyspnoea [Unknown]
